FAERS Safety Report 25518044 (Version 1)
Quarter: 2025Q3

REPORT INFORMATION
  Report Type: Spontaneous
  Country: KR (occurrence: KR)
  Receive Date: 20250704
  Receipt Date: 20250704
  Transmission Date: 20251020
  Serious: Yes (Other)
  Sender: TEVA
  Company Number: KR-TEVA-VS-3347279

PATIENT
  Age: 38 Year
  Sex: Female

DRUGS (7)
  1. AJOVY [Suspect]
     Active Substance: FREMANEZUMAB-VFRM
     Indication: Product used for unknown indication
     Route: 058
     Dates: start: 20250508
  2. K-Cab ODT [Concomitant]
     Indication: Product used for unknown indication
     Route: 065
  3. PROPRANOLOL HYDROCHLORIDE [Concomitant]
     Active Substance: PROPRANOLOL HYDROCHLORIDE
     Indication: Product used for unknown indication
     Route: 065
  4. BRINTELLIX [Concomitant]
     Active Substance: VORTIOXETINE HYDROBROMIDE
     Indication: Product used for unknown indication
     Route: 065
  5. Alpranaks [Concomitant]
     Indication: Product used for unknown indication
     Route: 065
  6. Ginexin-F [Concomitant]
     Indication: Product used for unknown indication
     Route: 065
  7. Menes S [Concomitant]
     Indication: Product used for unknown indication
     Route: 065

REACTIONS (18)
  - Intracranial aneurysm [Unknown]
  - Nausea [Unknown]
  - Headache [Unknown]
  - Loss of personal independence in daily activities [Unknown]
  - Vertigo [Unknown]
  - Back pain [Unknown]
  - Gastrooesophageal reflux disease [Unknown]
  - Chest discomfort [Unknown]
  - Phonophobia [Unknown]
  - Photophobia [Unknown]
  - Dizziness [Recovering/Resolving]
  - Paraesthesia [Unknown]
  - Oncocytoma [Unknown]
  - Pleomorphic adenoma [Unknown]
  - Neoplasm [Unknown]
  - Tinnitus [Unknown]
  - Depression [Unknown]
  - Inappropriate schedule of product administration [Unknown]

NARRATIVE: CASE EVENT DATE: 20250101
